FAERS Safety Report 9457686 (Version 1)
Quarter: 2013Q3

REPORT INFORMATION
  Report Type: Spontaneous
  Country: US (occurrence: None)
  Receive Date: 20130812
  Receipt Date: 20130812
  Transmission Date: 20140515
  Serious: No
  Sender: FDA-Public Use
  Company Number: None

PATIENT
  Age: 6 Year
  Sex: Male
  Weight: 22.68 kg

DRUGS (1)
  1. SINGULAIR [Suspect]
     Indication: ASTHMA
     Dosage: 1 PILL TWICE DAILY TAKEN BY MOUTH
     Route: 048

REACTIONS (4)
  - Aggression [None]
  - Aggression [None]
  - Abnormal behaviour [None]
  - Anger [None]
